FAERS Safety Report 8312938-3 (Version None)
Quarter: 2012Q2

REPORT INFORMATION
  Report Type: 
  Country: None (occurrence: None)
  Receive Date: 20120426
  Receipt Date: 20120307
  Transmission Date: 20120825
  Serious: No
  Sender: FDA-Public Use
  Company Number: US-MYLANLABS-2012S1005319

PATIENT
  Age: 66 Year
  Sex: Female
  Weight: 76.66 kg

DRUGS (16)
  1. VENLAFAXINE [Suspect]
     Indication: DEPRESSION
  2. VENLAFAXINE HYDROCHLORIDE [Suspect]
     Indication: DEPRESSION
     Dates: end: 20110101
  3. BUPROPION HYDROCHLORIDE [Suspect]
     Indication: DEPRESSION
     Dates: start: 20111101
  4. OXYCODONE HCL [Concomitant]
     Indication: PAIN
     Dosage: 40MG, 3 IN 1 DAY
  5. CLONAZEPAM [Concomitant]
     Indication: SLEEP DISORDER
  6. HYDROXYCHLOROQUINE SULFATE [Concomitant]
     Indication: ARTHRALGIA
  7. PRASTERONE [Concomitant]
     Indication: MEDICAL DIET
  8. FLUOXETINE HYDROCHLORIDE [Suspect]
     Indication: DEPRESSION
     Dates: start: 20111101
  9. OXYCODONE HCL [Concomitant]
     Indication: BREAKTHROUGH PAIN
  10. FOLIC ACID [Concomitant]
     Indication: MEDICAL DIET
  11. ANTIINFLAMMATORY/ANTIRHEUMATIC AGENTS IN COMB [Suspect]
  12. LEVOTHYROXINE SODIUM [Concomitant]
     Indication: THYROID DISORDER
  13. ROPINIROLE [Concomitant]
     Indication: RESTLESS LEGS SYNDROME
  14. FISH OIL [Concomitant]
     Indication: MEDICAL DIET
  15. UBIDECARENONE [Concomitant]
     Indication: MEDICAL DIET
  16. VITAMIN D [Concomitant]
     Indication: MEDICAL DIET

REACTIONS (4)
  - ULCER [None]
  - DRUG INEFFECTIVE [None]
  - DEPRESSION [None]
  - SUICIDAL IDEATION [None]
